FAERS Safety Report 15459405 (Version 1)
Quarter: 2018Q4

REPORT INFORMATION
  Report Type: Spontaneous
  Country: US (occurrence: US)
  Receive Date: 20181003
  Receipt Date: 20181003
  Transmission Date: 20190204
  Serious: Yes (Other)
  Sender: FDA-Public Use
  Company Number: US-MIST-TIR-2018-1021

PATIENT
  Age: 53 Year
  Sex: Female

DRUGS (1)
  1. TIROSINT [Suspect]
     Active Substance: LEVOTHYROXINE SODIUM
     Indication: AUTOIMMUNE THYROIDITIS
     Dosage: 275MCG IN THE MORNING AND 250MCG IN THE AFTERNOON
     Route: 048

REACTIONS (4)
  - Carotid artery dissection [Recovered/Resolved]
  - Accident [Unknown]
  - Autoimmune disorder [Unknown]
  - Blood thyroid stimulating hormone increased [Unknown]

NARRATIVE: CASE EVENT DATE: 2016
